FAERS Safety Report 5357504-7 (Version None)
Quarter: 2007Q2

REPORT INFORMATION
  Report Type: 
  Country: None (occurrence: None)
  Receive Date: 20070614
  Receipt Date: 20070613
  Transmission Date: 20071010
  Serious: Yes (Other)
  Sender: FDA-Public Use
  Company Number: GB-BRISTOL-MYERS SQUIBB COMPANY-13812763

PATIENT
  Age: 68 Year
  Weight: 61 kg

DRUGS (3)
  1. CARBOPLATIN [Suspect]
     Indication: LUNG NEOPLASM MALIGNANT
  2. MADOPAR [Suspect]
     Indication: PARKINSON'S DISEASE
  3. ROPINIROLE HCL [Suspect]
     Indication: PARKINSON'S DISEASE

REACTIONS (1)
  - THERAPEUTIC RESPONSE UNEXPECTED [None]
